FAERS Safety Report 5502764-2 (Version None)
Quarter: 2007Q4

REPORT INFORMATION
  Report Type: 
  Country: None (occurrence: None)
  Receive Date: 20071031
  Receipt Date: 20071022
  Transmission Date: 20080405
  Serious: Yes (Hospitalization)
  Sender: FDA-Public Use
  Company Number: JP-BRISTOL-MYERS SQUIBB COMPANY-13939632

PATIENT
  Age: 52 Year
  Sex: Female

DRUGS (9)
  1. TAXOL [Suspect]
     Indication: GASTRIC CANCER
     Dosage: PACLITAXEL 80MG WITH 500ML OF GLUCOSE INFUSION WAS STARTED.ALSO RECEIVED PACLITAXEL ON 06-SEP-2007
     Route: 041
     Dates: start: 20070928, end: 20070928
  2. OXYCONTIN [Concomitant]
     Route: 048
  3. NORVASC [Concomitant]
     Route: 048
  4. DUROTEP [Concomitant]
     Route: 062
     Dates: start: 20070926
  5. OPSO [Concomitant]
     Route: 048
  6. ZANTAC [Concomitant]
     Route: 041
     Dates: start: 20070906, end: 20070906
  7. DECADRON [Concomitant]
     Route: 041
     Dates: start: 20070906, end: 20070906
  8. RESTAMIN [Concomitant]
     Route: 048
     Dates: start: 20070906, end: 20070906
  9. TS-1 [Concomitant]
     Route: 048
     Dates: start: 20070823, end: 20070912

REACTIONS (2)
  - HYPERTENSION [None]
  - LOSS OF CONSCIOUSNESS [None]
